FAERS Safety Report 21287763 (Version 1)
Quarter: 2022Q3

REPORT INFORMATION
  Report Type: Report from Study
  Country: US (occurrence: US)
  Receive Date: 20220902
  Receipt Date: 20220902
  Transmission Date: 20221026
  Serious: Yes (Life-Threatening, Hospitalization)
  Sender: FDA-Public Use
  Company Number: US-ABBVIE-22P-163-4526080-00

PATIENT
  Age: 70 Year
  Sex: Female
  Weight: 54 kg

DRUGS (3)
  1. IBRUTINIB [Suspect]
     Active Substance: IBRUTINIB
     Indication: Chronic lymphocytic leukaemia
     Route: 048
     Dates: start: 20220525, end: 20220822
  2. RITUXIMAB [Concomitant]
     Active Substance: RITUXIMAB
     Indication: Chronic lymphocytic leukaemia
     Dosage: CYCLE 2:  50MG/M2 IV OVER 4 HOURS ON DAY 1 AND 325MG/M2 IV ON DAY 2
     Route: 042
  3. RITUXIMAB [Concomitant]
     Active Substance: RITUXIMAB
     Dosage: DAY 1 OF EACH CYCLE FOR CYCLE 3-7
     Route: 042
     Dates: end: 20150205

REACTIONS (3)
  - Alanine aminotransferase increased [Not Recovered/Not Resolved]
  - Aspartate aminotransferase increased [Not Recovered/Not Resolved]
  - Blood bilirubin increased [Not Recovered/Not Resolved]

NARRATIVE: CASE EVENT DATE: 20220820
